FAERS Safety Report 6302512-2 (Version None)
Quarter: 2009Q3

REPORT INFORMATION
  Report Type: 
  Country: None (occurrence: None)
  Receive Date: 20090810
  Receipt Date: 20090727
  Transmission Date: 20100115
  Serious: Yes (Hospitalization)
  Sender: FDA-Public Use
  Company Number: CH-ROCHE-648358

PATIENT
  Age: 61 Year
  Sex: Female
  Weight: 54.3 kg

DRUGS (3)
  1. BONIVA [Suspect]
     Route: 041
     Dates: start: 20071015
  2. CALCIMAGON [Concomitant]
  3. VITAMIN D3 [Concomitant]

REACTIONS (1)
  - ANGIOEDEMA [None]
